FAERS Safety Report 7432967-1 (Version None)
Quarter: 2011Q2

REPORT INFORMATION
  Report Type: 
  Country: None (occurrence: None)
  Receive Date: 20110422
  Receipt Date: 20110419
  Transmission Date: 20111010
  Serious: No
  Sender: FDA-Public Use
  Company Number: US-PFIZER INC-2011052966

PATIENT

DRUGS (1)
  1. FLAGYL [Suspect]
     Indication: GIARDIASIS
     Dosage: 250 MG, 3X/DAY

REACTIONS (1)
  - NO ADVERSE EVENT [None]
